FAERS Safety Report 6765068-6 (Version None)
Quarter: 2010Q2

REPORT INFORMATION
  Report Type: 
  Country: None (occurrence: None)
  Receive Date: 20100609
  Receipt Date: 20100609
  Transmission Date: 20101027
  Serious: Yes (Life-Threatening, Hospitalization)
  Sender: FDA-Public Use
  Company Number: None

PATIENT
  Age: 90 Year
  Sex: Male

DRUGS (1)
  1. FLUDROCORTISONE ACETATE TAB [Suspect]
     Indication: ADRENAL INSUFFICIENCY
     Dosage: 0.1MG BY MOUTH DAILY
     Dates: start: 20100526, end: 20100605

REACTIONS (1)
  - OEDEMA [None]
